FAERS Safety Report 4654366-8 (Version None)
Quarter: 2005Q2

REPORT INFORMATION
  Report Type: 
  Country: None (occurrence: None)
  Receive Date: 20050404
  Receipt Date: 20041221
  Transmission Date: 20051028
  Serious: No
  Sender: FDA-Public Use
  Company Number: USA041286779

PATIENT
  Sex: Female

DRUGS (2)
  1. CYMBALTA (DULOEXTINE HYDROCHLORIDE) [Suspect]
     Dosage: 30 MG DAY
     Dates: start: 20041210
  2. PAXIL CR [Concomitant]

REACTIONS (3)
  - COELIAC DISEASE [None]
  - FATIGUE [None]
  - SOMNOLENCE [None]
